FAERS Safety Report 9245270 (Version 1)
Quarter: 2013Q1

REPORT INFORMATION
  Report Type: Spontaneous
  Country: US (occurrence: None)
  Receive Date: 20121130
  Receipt Date: 20121130
  Transmission Date: 20140127
  Serious: Yes (Hospitalization)
  Sender: FDA-Public Use
  Company Number: 338217

PATIENT
  Age: 59 Year
  Sex: Female
  Weight: 61.2 kg

DRUGS (8)
  1. NOVOLOG [Suspect]
     Indication: TYPE 1 DIABETES MELLITUS
     Dosage: SLIDING SCALE, SUBCUTANEOUS
     Route: 058
     Dates: end: 2009
  2. CLONAZEPAM (CLONAZEPAM) (CLONAZEPAM) [Concomitant]
  3. BACLOFEN (BACLOFEN) [Concomitant]
  4. TIZANIDINE (TIZANIDINE) [Concomitant]
  5. FENTANYL (FENTANYL) [Concomitant]
  6. FUROSEMIDE (FUROSEMIDE) [Concomitant]
  7. LORTAB?/00607101/ (HYDROCODONE BITARTRATE, PARACETAMOL) [Concomitant]
  8. LANTUS ?/01483501/ (INSULIN GLARGINE) [Concomitant]

REACTIONS (4)
  - Hypoglycaemic unconsciousness [None]
  - Vomiting [None]
  - Diarrhoea [None]
  - Blood glucose decreased [None]
